FAERS Safety Report 12382276 (Version 11)
Quarter: 2020Q3

REPORT INFORMATION
  Report Type: Report from Study
  Country: GB (occurrence: GB)
  Receive Date: 20160518
  Receipt Date: 20170502
  Transmission Date: 20201104
  Serious: Yes (Death, Hospitalization, Other)
  Sender: FDA-Public Use
  Company Number: GB-JNJFOC-20160515313

PATIENT
  Age: 84 Year
  Sex: Male

DRUGS (8)
  1. AMITRIPTYLINE [Concomitant]
     Active Substance: AMITRIPTYLINE
  2. COCODAMOL [Concomitant]
     Active Substance: ACETAMINOPHEN\CODEINE PHOSPHATE
  3. IBRUTINIB [Suspect]
     Active Substance: IBRUTINIB
     Route: 048
  4. IBRUTINIB [Suspect]
     Active Substance: IBRUTINIB
     Indication: CHRONIC LYMPHOCYTIC LEUKAEMIA
     Dosage: UNK
     Route: 048
     Dates: start: 20130820, end: 20160513
  5. OMEPRAZOLE. [Concomitant]
     Active Substance: OMEPRAZOLE
  6. METFORMIN [Concomitant]
     Active Substance: METFORMIN HYDROCHLORIDE
  7. SIMVASTATIN. [Concomitant]
     Active Substance: SIMVASTATIN
  8. QUININE SULPHATE [Concomitant]
     Active Substance: QUININE SULFATE

REACTIONS (5)
  - Bronchiectasis [Fatal]
  - Chronic kidney disease [Not Recovered/Not Resolved]
  - Pneumonia [Recovered/Resolved]
  - Melaena [Recovered/Resolved]
  - Muscular weakness [Not Recovered/Not Resolved]

NARRATIVE: CASE EVENT DATE: 20160326
